FAERS Safety Report 22254931 (Version 1)
Quarter: 2023Q2

REPORT INFORMATION
  Report Type: Spontaneous
  Country: DE (occurrence: DE)
  Receive Date: 20230426
  Receipt Date: 20230426
  Transmission Date: 20230721
  Serious: Yes (Other)
  Sender: FDA-Public Use
  Company Number: DE-SUN PHARMACEUTICAL INDUSTRIES LTD-2023RR-386438

PATIENT
  Age: 48 Year
  Sex: Female
  Weight: 59 kg

DRUGS (8)
  1. SUMATRIPTAN [Suspect]
     Active Substance: SUMATRIPTAN
     Indication: Migraine
     Dosage: 6 MILLIGRAM, UNK
     Route: 058
  2. AMITRIPTYLINE [Suspect]
     Active Substance: AMITRIPTYLINE
     Indication: Prophylaxis
     Dosage: UNK
     Route: 065
     Dates: start: 201912
  3. METOPROLOL [Suspect]
     Active Substance: METOPROLOL
     Indication: Prophylaxis
     Dosage: UNK
     Route: 065
     Dates: start: 201912
  4. TOPIRAMATE [Suspect]
     Active Substance: TOPIRAMATE
     Indication: Prophylaxis
     Dosage: UNK
     Route: 065
  5. FLUNARIZINE [Suspect]
     Active Substance: FLUNARIZINE
     Indication: Prophylaxis
     Dosage: UNK
     Route: 065
     Dates: start: 201912
  6. NARATRIPTAN [Concomitant]
     Active Substance: NARATRIPTAN HYDROCHLORIDE
     Indication: Migraine
     Dosage: 2.5 MILLIGRAM, UNK
     Route: 058
     Dates: start: 2019
  7. ELETRIPTAN [Concomitant]
     Active Substance: ELETRIPTAN
     Indication: Migraine
     Dosage: 40 MILLIGRAM, UNK
     Route: 058
     Dates: start: 2019
  8. ELETRIPTAN [Concomitant]
     Active Substance: ELETRIPTAN
     Dosage: 140 MILLIGRAM, UNK
     Route: 058
     Dates: start: 2019

REACTIONS (2)
  - Drug ineffective [Unknown]
  - Disease recurrence [Recovered/Resolved]
